FAERS Safety Report 7677911-7 (Version None)
Quarter: 2011Q3

REPORT INFORMATION
  Report Type: 
  Country: None (occurrence: None)
  Receive Date: 20110811
  Receipt Date: 20110803
  Transmission Date: 20111222
  Serious: Yes (Hospitalization, Other)
  Sender: FDA-Public Use
  Company Number: US-MERCK-1101USA01770

PATIENT
  Age: 66 Year
  Sex: Female
  Weight: 80 kg

DRUGS (7)
  1. VITAMINS (UNSPECIFIED) [Concomitant]
     Route: 065
  2. FOSAMAX [Suspect]
     Route: 048
     Dates: start: 20061030
  3. CALCIUM CARBONATE [Concomitant]
     Route: 065
  4. FOSAMAX [Suspect]
     Indication: OSTEOPOROSIS
     Route: 048
     Dates: start: 20041228, end: 20100901
  5. HORMONES (UNSPECIFIED) [Concomitant]
     Route: 065
     Dates: start: 19940101
  6. ZOCOR [Concomitant]
     Indication: BLOOD CHOLESTEROL INCREASED
     Route: 065
     Dates: start: 20020101
  7. FOSAMAX [Suspect]
     Indication: BONE LOSS
     Route: 048
     Dates: start: 20041228, end: 20100901

REACTIONS (36)
  - WOUND INFECTION STAPHYLOCOCCAL [None]
  - AMNESIA [None]
  - HAEMANGIOMA [None]
  - TRICUSPID VALVE INCOMPETENCE [None]
  - OESOPHAGEAL SPASM [None]
  - LACTOBACILLUS INFECTION [None]
  - HYPERTENSION [None]
  - PAIN IN EXTREMITY [None]
  - FATIGUE [None]
  - CHEST PAIN [None]
  - ELECTROCARDIOGRAM ABNORMAL [None]
  - FALL [None]
  - MALIGNANT MELANOMA [None]
  - SYNOVIAL CYST [None]
  - UTERINE LEIOMYOMA [None]
  - RASH [None]
  - CAROTID BRUIT [None]
  - OSTEOARTHRITIS [None]
  - ALANINE AMINOTRANSFERASE INCREASED [None]
  - MITRAL VALVE INCOMPETENCE [None]
  - MIGRAINE [None]
  - ANGIOEDEMA [None]
  - ASPARTATE AMINOTRANSFERASE INCREASED [None]
  - FOOT FRACTURE [None]
  - MENISCUS LESION [None]
  - PROTEIN URINE [None]
  - ACTINIC ELASTOSIS [None]
  - JOINT EFFUSION [None]
  - BLOOD PRESSURE INCREASED [None]
  - MELANOCYTIC NAEVUS [None]
  - INSOMNIA [None]
  - ARTHRALGIA [None]
  - GASTROOESOPHAGEAL REFLUX DISEASE [None]
  - BRONCHITIS [None]
  - FEMUR FRACTURE [None]
  - URTICARIA [None]
